FAERS Safety Report 19181739 (Version 1)
Quarter: 2021Q2

REPORT INFORMATION
  Report Type: Spontaneous
  Country: US (occurrence: US)
  Receive Date: 20210426
  Receipt Date: 20210426
  Transmission Date: 20210717
  Serious: Yes (Other)
  Sender: FDA-Public Use
  Company Number: US-NOVOPROD-806215

PATIENT
  Age: 63 Year
  Sex: Female

DRUGS (3)
  1. OZEMPIC [Suspect]
     Active Substance: SEMAGLUTIDE
     Indication: PRODUCT USED FOR UNKNOWN INDICATION
     Dosage: UNK
     Route: 058
  2. NOVOLOG [Suspect]
     Active Substance: INSULIN ASPART
     Indication: PRODUCT USED FOR UNKNOWN INDICATION
     Dosage: UNK
     Route: 058
  3. DUPIXENT [Suspect]
     Active Substance: DUPILUMAB
     Indication: ASTHMA
     Dosage: 300 MG, EVERY OTHER WEEK
     Dates: start: 202101

REACTIONS (9)
  - Memory impairment [Not Recovered/Not Resolved]
  - Adverse drug reaction [Unknown]
  - Injection site pain [Recovered/Resolved]
  - Dental implantation [Unknown]
  - Hepatic steatosis [Not Recovered/Not Resolved]
  - Blood pressure increased [Unknown]
  - Abdominal pain upper [Unknown]
  - Infusion site reaction [Unknown]
  - Myalgia [Unknown]

NARRATIVE: CASE EVENT DATE: 2021
